FAERS Safety Report 8960080 (Version 1)
Quarter: 2012Q4

REPORT INFORMATION
  Report Type: 
  Country: US (occurrence: US)
  Receive Date: 20121211
  Receipt Date: 20121211
  Transmission Date: 20130627
  Serious: Yes (Death, Hospitalization)
  Sender: FDA-Public Use
  Company Number: US-GLAXOSMITHKLINE-A1003906A

PATIENT
  Age: 81 Year
  Sex: Female

DRUGS (1)
  1. INNOPRAN XL [Suspect]
     Dosage: 80MG Per day
     Dates: start: 2009

REACTIONS (3)
  - Death [Fatal]
  - Hepatic cancer [Unknown]
  - Coronary arterial stent insertion [Unknown]
